FAERS Safety Report 4710156-9 (Version None)
Quarter: 2005Q2

REPORT INFORMATION
  Report Type: 
  Country: None (occurrence: None)
  Receive Date: 20050629
  Receipt Date: 20050525
  Transmission Date: 20051028
  Serious: No
  Sender: FDA-Public Use
  Company Number: 05P-163-0301595-00

PATIENT
  Age: 62 Year
  Sex: Female
  Weight: 100 kg

DRUGS (7)
  1. HUMIRA [Suspect]
     Indication: RHEUMATOID ARTHRITIS
     Dosage: 40 MG, 1 IN 1 WK, SUBCUTANEOUS; 40 MG, 1 IN 2 WK, SUBCUTANEOUS
     Route: 058
     Dates: start: 20031101, end: 20041201
  2. HUMIRA [Suspect]
     Indication: RHEUMATOID ARTHRITIS
     Dosage: 40 MG, 1 IN 1 WK, SUBCUTANEOUS; 40 MG, 1 IN 2 WK, SUBCUTANEOUS
     Route: 058
     Dates: start: 20041201
  3. LEVOTHYROXINE SODIUM [Concomitant]
  4. FLUOXETINE HCL [Concomitant]
  5. ESTRADIOL [Concomitant]
  6. MULTI-VITAMINS [Concomitant]
  7. LORATADINE [Concomitant]

REACTIONS (1)
  - ARTHRITIS [None]
